FAERS Safety Report 4596681-2 (Version None)
Quarter: 2005Q1

REPORT INFORMATION
  Report Type: 
  Country: None (occurrence: None)
  Receive Date: 20050228
  Receipt Date: 20050215
  Transmission Date: 20050727
  Serious: Yes (Hospitalization, Other)
  Sender: FDA-Public Use
  Company Number: 2005030747

PATIENT
  Age: 5 Day
  Sex: Female
  Weight: 2.6 kg

DRUGS (1)
  1. ZITHROMAX [Suspect]
     Indication: PROPHYLAXIS
     Dosage: 1 IN 1 D , ORAL
     Route: 048
     Dates: start: 20050201, end: 20050201

REACTIONS (3)
  - BLOOD BILIRUBIN INCREASED [None]
  - HAEMOLYTIC ANAEMIA [None]
  - NEONATAL DISORDER [None]
